FAERS Safety Report 5750368-9 (Version None)
Quarter: 2008Q2

REPORT INFORMATION
  Report Type: 
  Country: None (occurrence: None)
  Receive Date: 20080523
  Receipt Date: 20080523
  Transmission Date: 20081010
  Serious: Yes (Life-Threatening, Hospitalization)
  Sender: FDA-Public Use
  Company Number: None

PATIENT
  Sex: Female
  Weight: 16 kg

DRUGS (1)
  1. PEGASPARAGINASE [Suspect]
     Indication: ACUTE LYMPHOCYTIC LEUKAEMIA
     Dosage: 1450 UNITS  ONE TIME IM
     Route: 030
     Dates: start: 20070326, end: 20070326

REACTIONS (5)
  - DISSEMINATED INTRAVASCULAR COAGULATION [None]
  - PANCREATITIS [None]
  - PLEURAL EFFUSION [None]
  - RESPIRATORY DISTRESS [None]
  - TACHYCARDIA [None]
